FAERS Safety Report 8585583-2 (Version None)
Quarter: 2012Q3

REPORT INFORMATION
  Report Type: 
  Country: None (occurrence: None)
  Receive Date: 20120810
  Receipt Date: 20120803
  Transmission Date: 20120928
  Serious: Yes (Other)
  Sender: FDA-Public Use
  Company Number: JP-JNJFOC-20120803804

PATIENT
  Age: 57 Year
  Sex: Female
  Weight: 54 kg

DRUGS (6)
  1. METHOTREXATE [Concomitant]
     Route: 048
  2. REMICADE [Suspect]
     Indication: RHEUMATOID ARTHRITIS
     Route: 042
     Dates: start: 20120801
  3. ISOTONIC SODIUM CHLORIDE [Concomitant]
     Route: 065
     Dates: start: 20120801, end: 20120801
  4. REMICADE [Suspect]
     Route: 042
     Dates: start: 20120606
  5. REMICADE [Suspect]
     Route: 042
  6. PREDNISONE TAB [Concomitant]
     Route: 048

REACTIONS (2)
  - INFUSION RELATED REACTION [None]
  - OXYGEN SATURATION DECREASED [None]
